FAERS Safety Report 10037229 (Version 1)
Quarter: 2014Q1

REPORT INFORMATION
  Report Type: Spontaneous
  Country: US (occurrence: None)
  Receive Date: 20140325
  Receipt Date: 20140325
  Transmission Date: 20141002
  Serious: Yes (Other)
  Sender: FDA-Public Use
  Company Number: None

PATIENT
  Age: 23 Year
  Sex: Female
  Weight: 107.05 kg

DRUGS (1)
  1. LUPRON DEPOT [Suspect]
     Indication: ENDOMETRIOSIS
     Dates: start: 20130610, end: 20130930

REACTIONS (8)
  - Loss of consciousness [None]
  - Mental disorder [None]
  - Mental status changes [None]
  - Mood altered [None]
  - Depression [None]
  - Suicidal ideation [None]
  - Drug ineffective [None]
  - Activities of daily living impaired [None]
